FAERS Safety Report 25486857 (Version 1)
Quarter: 2025Q2

REPORT INFORMATION
  Report Type: Spontaneous
  Country: US (occurrence: US)
  Receive Date: 20250627
  Receipt Date: 20250627
  Transmission Date: 20250717
  Serious: No
  Sender: Kenvue
  Company Number: US-KENVUE-20250607581

PATIENT
  Sex: Female

DRUGS (1)
  1. ZYRTEC [Suspect]
     Active Substance: CETIRIZINE HYDROCHLORIDE
     Indication: Product used for unknown indication
     Route: 065
     Dates: start: 202506

REACTIONS (2)
  - Malaise [Unknown]
  - Expired product administered [Unknown]

NARRATIVE: CASE EVENT DATE: 20250601
